FAERS Safety Report 21967317 (Version 1)
Quarter: 2023Q1

REPORT INFORMATION
  Report Type: Spontaneous
  Country: US (occurrence: None)
  Receive Date: 20230206
  Receipt Date: 20230206
  Transmission Date: 20230418
  Serious: Yes (Other)
  Sender: FDA-Public Use
  Company Number: None

PATIENT
  Age: 5 Year
  Sex: Female
  Weight: 19.8 kg

DRUGS (4)
  1. MIRALAX [Suspect]
     Active Substance: POLYETHYLENE GLYCOL 3350
     Indication: Constipation
     Dosage: OTHER STRENGTH : HALF/FULL CAP;?OTHER FREQUENCY : 2-3X THEN DAILY;?
     Route: 048
  2. 11-strain probiotic [Concomitant]
  3. Good Day Chocolate-Calm [Concomitant]
  4. MAGNESIUM [Concomitant]
     Active Substance: MAGNESIUM

REACTIONS (10)
  - Seizure [None]
  - Insomnia [None]
  - Sleep terror [None]
  - Sensory disturbance [None]
  - Fear of eating [None]
  - Irritability [None]
  - Anger [None]
  - Screaming [None]
  - Crying [None]
  - Aggression [None]

NARRATIVE: CASE EVENT DATE: 20220311
